FAERS Safety Report 4688882-X (Version None)
Quarter: 2005Q2

REPORT INFORMATION
  Report Type: 
  Country: None (occurrence: None)
  Receive Date: 20050613
  Receipt Date: 20050531
  Transmission Date: 20051028
  Serious: Yes (Hospitalization)
  Sender: FDA-Public Use
  Company Number: FR-JNJFOC-20050600366

PATIENT
  Age: 10 Year
  Sex: Male
  Weight: 32 kg

DRUGS (2)
  1. PROPULSID [Suspect]
     Route: 049
  2. NOZINAN [Concomitant]

REACTIONS (3)
  - CONVULSION [None]
  - OTITIS MEDIA [None]
  - PYREXIA [None]
